FAERS Safety Report 24964141 (Version 2)
Quarter: 2025Q2

REPORT INFORMATION
  Report Type: Report from Study
  Country: CO (occurrence: CO)
  Receive Date: 20250213
  Receipt Date: 20250621
  Transmission Date: 20250716
  Serious: Yes (Hospitalization, Other)
  Sender: UCB
  Company Number: CO-UCBSA-2024056489

PATIENT
  Age: 32 Year
  Sex: Female
  Weight: 42 kg

DRUGS (6)
  1. CERTOLIZUMAB PEGOL [Suspect]
     Active Substance: CERTOLIZUMAB PEGOL
     Indication: Rheumatoid arthritis
     Dosage: 400 MILLIGRAM, EV 30 DAYS
     Route: 058
     Dates: start: 20190717, end: 20230929
  2. CERTOLIZUMAB PEGOL [Suspect]
     Active Substance: CERTOLIZUMAB PEGOL
     Dosage: 400 MILLIGRAM, EV 30 DAYS
     Route: 058
     Dates: start: 20231109
  3. CALCIUM [Concomitant]
     Active Substance: CALCIUM
     Indication: Pregnancy
     Dosage: 1 TABLET ONCE DAILY (QD)
     Dates: start: 20240708
  4. FERROUS SULFATE [Concomitant]
     Active Substance: FERROUS SULFATE
     Indication: Pregnancy
     Dates: start: 20240708
  5. FOLIC ACID [Concomitant]
     Active Substance: FOLIC ACID
     Indication: Rheumatoid arthritis
     Dates: start: 20240708
  6. HYDROXYCHLOROQUINE [Concomitant]
     Active Substance: HYDROXYCHLOROQUINE
     Indication: Rheumatoid arthritis
     Dosage: 200 MILLIGRAM, ONCE DAILY (QD)
     Dates: start: 20250210

REACTIONS (9)
  - Pelvic infection [Not Recovered/Not Resolved]
  - Caesarean section [Not Recovered/Not Resolved]
  - Rheumatoid arthritis [Not Recovered/Not Resolved]
  - Premature delivery [Unknown]
  - Lactation insufficiency [Recovered/Resolved]
  - Maternal exposure before pregnancy [Unknown]
  - Maternal exposure during pregnancy [Unknown]
  - Maternal exposure during breast feeding [Unknown]
  - Off label use [Unknown]

NARRATIVE: CASE EVENT DATE: 20190717
